FAERS Safety Report 21148738 (Version 1)
Quarter: 2022Q3

REPORT INFORMATION
  Report Type: Spontaneous
  Country: JP (occurrence: JP)
  Receive Date: 20220729
  Receipt Date: 20220729
  Transmission Date: 20221027
  Serious: Yes (Hospitalization)
  Sender: FDA-Public Use
  Company Number: JP-STRIDES ARCOLAB LIMITED-2022SP009551

PATIENT
  Age: 36 Year
  Sex: Female

DRUGS (2)
  1. PREDNISOLONE [Suspect]
     Active Substance: PREDNISOLONE
     Indication: Systemic lupus erythematosus
     Dosage: 10 MILLIGRAM
     Route: 048
  2. MIZORIBINE [Concomitant]
     Active Substance: MIZORIBINE
     Indication: Systemic lupus erythematosus
     Dosage: 150 MILLIGRAM
     Route: 065

REACTIONS (3)
  - Lupus endocarditis [Recovered/Resolved]
  - Aortic valve disease mixed [Recovered/Resolved]
  - Left ventricular hypertrophy [Recovered/Resolved]
